FAERS Safety Report 16972465 (Version 1)
Quarter: 2019Q4

REPORT INFORMATION
  Report Type: Spontaneous
  Country: US (occurrence: US)
  Receive Date: 20191029
  Receipt Date: 20191029
  Transmission Date: 20200122
  Serious: No
  Sender: FDA-Public Use
  Company Number: US-JNJFOC-20191032330

PATIENT
  Age: 46 Year
  Sex: Female
  Weight: 65.38 kg

DRUGS (1)
  1. MENS ROGAINE EXTRA STRENGTH [Suspect]
     Active Substance: MINOXIDIL
     Indication: ALOPECIA
     Dosage: 1 DROPPER ONCE A DAY
     Route: 061
     Dates: start: 20190830

REACTIONS (3)
  - Intentional product misuse [Unknown]
  - Product use issue [Unknown]
  - Rash pruritic [Recovered/Resolved]

NARRATIVE: CASE EVENT DATE: 20190830
